FAERS Safety Report 15007781 (Version 2)
Quarter: 2018Q2

REPORT INFORMATION
  Report Type: Spontaneous
  Country: JP (occurrence: JP)
  Receive Date: 20180613
  Receipt Date: 20180621
  Transmission Date: 20180711
  Serious: Yes (Death, Hospitalization, Other)
  Sender: FDA-Public Use
  Company Number: PHJP2018JP012303

PATIENT
  Age: 68 Year
  Sex: Female

DRUGS (1)
  1. PAZOPANIB [Suspect]
     Active Substance: PAZOPANIB
     Indication: CLEAR CELL SARCOMA OF SOFT TISSUE
     Dosage: 600 MG, UNK
     Route: 048

REACTIONS (5)
  - Pleural effusion [Unknown]
  - Malaise [Unknown]
  - Pericardial effusion [Unknown]
  - Respiratory failure [Fatal]
  - Dyspnoea [Unknown]
